FAERS Safety Report 8580597-0 (Version None)
Quarter: 2012Q3

REPORT INFORMATION
  Report Type: 
  Country: None (occurrence: None)
  Receive Date: 20120809
  Receipt Date: 20120731
  Transmission Date: 20120928
  Serious: Yes (Other)
  Sender: FDA-Public Use
  Company Number: BR-AMGEN-BRASP2012049332

PATIENT
  Age: 50 Year
  Sex: Female
  Weight: 90 kg

DRUGS (3)
  1. CYCLOBENZAPRINE HCL [Concomitant]
     Indication: PAIN
     Dosage: 10 MG, UNK
  2. ENBREL [Suspect]
     Indication: RHEUMATOID ARTHRITIS
     Dosage: 25 MG, 2X/WEEK
     Route: 058
     Dates: start: 20120101
  3. PREDNISONE TAB [Concomitant]
     Indication: PAIN
     Dosage: 5 MG, UNK

REACTIONS (4)
  - COUGH [None]
  - INFLUENZA [None]
  - PULMONARY OEDEMA [None]
  - INCREASED BRONCHIAL SECRETION [None]
